FAERS Safety Report 9383934 (Version 2)
Quarter: 2013Q3

REPORT INFORMATION
  Report Type: Report from Study
  Country: GB (occurrence: GB)
  Receive Date: 20130705
  Receipt Date: 20130904
  Transmission Date: 20140515
  Serious: Yes (Death, Hospitalization)
  Sender: FDA-Public Use
  Company Number: GB-ROCHE-1245106

PATIENT
  Age: 80 Year
  Sex: Male

DRUGS (5)
  1. RANIBIZUMAB [Suspect]
     Indication: PRODUCT USED FOR UNKNOWN INDICATION
     Route: 050
     Dates: start: 20120808
  2. STALEVO [Concomitant]
  3. TRAMADOL [Concomitant]
     Route: 048
     Dates: start: 20120924
  4. ORAMORPH [Concomitant]
     Dosage: 5-10 MG
     Route: 048
     Dates: start: 20120924, end: 20120924
  5. PARACETAMOL [Concomitant]
     Route: 048
     Dates: start: 20120924

REACTIONS (2)
  - Death [Fatal]
  - Abdominal pain [Recovered/Resolved]
